FAERS Safety Report 11779772 (Version 1)
Quarter: 2015Q4

REPORT INFORMATION
  Report Type: Spontaneous
  Country: US (occurrence: US)
  Receive Date: 20151125
  Receipt Date: 20151125
  Transmission Date: 20160304
  Serious: No
  Sender: FDA-Public Use
  Company Number: US-BIOGENIDEC-2015BI156027

PATIENT
  Age: 54 Year
  Sex: Female

DRUGS (1)
  1. TECFIDERA [Suspect]
     Active Substance: DIMETHYL FUMARATE
     Indication: MULTIPLE SCLEROSIS

REACTIONS (6)
  - Cognitive disorder [Unknown]
  - Urinary incontinence [Unknown]
  - Muscular weakness [Unknown]
  - Muscle spasticity [Unknown]
  - Faecal incontinence [Unknown]
  - Gait disturbance [Unknown]
